FAERS Safety Report 7201447-0 (Version None)
Quarter: 2010Q4

REPORT INFORMATION
  Report Type: 
  Country: None (occurrence: None)
  Receive Date: 20101229
  Receipt Date: 20101129
  Transmission Date: 20110411
  Serious: Yes (Hospitalization)
  Sender: FDA-Public Use
  Company Number: JP-BAYER-201011038BYL

PATIENT
  Age: 80 Year
  Sex: Male
  Weight: 49 kg

DRUGS (4)
  1. NEXAVAR [Suspect]
     Indication: RENAL CELL CARCINOMA
     Dosage: 800 MG (DAILY DOSE), , ORAL
     Route: 048
     Dates: start: 20090818, end: 20090901
  2. NEXAVAR [Suspect]
     Dosage: 400 MG (DAILY DOSE), , ORAL
     Route: 048
     Dates: start: 20090909, end: 20100219
  3. PASTARON [Concomitant]
     Route: 061
     Dates: start: 20090818
  4. DOGMATYL [Concomitant]
     Dosage: 150 MG (DAILY DOSE), , ORAL
     Route: 048
     Dates: start: 20090922

REACTIONS (10)
  - BLOOD AMYLASE INCREASED [None]
  - DIARRHOEA [None]
  - DYSPHONIA [None]
  - HEPATIC FUNCTION ABNORMAL [None]
  - HYPOCALCAEMIA [None]
  - HYPOTHYROIDISM [None]
  - LIPASE INCREASED [None]
  - MALAISE [None]
  - PALMAR-PLANTAR ERYTHRODYSAESTHESIA SYNDROME [None]
  - RASH [None]
